FAERS Safety Report 13422950 (Version 1)
Quarter: 2017Q2

REPORT INFORMATION
  Report Type: Spontaneous
  Country: FR (occurrence: FR)
  Receive Date: 20170410
  Receipt Date: 20170410
  Transmission Date: 20170830
  Serious: Yes (Hospitalization)
  Sender: FDA-Public Use
  Company Number: FR-BIOVITRUM-2017FR0340

PATIENT
  Sex: Female

DRUGS (4)
  1. KINERET [Suspect]
     Active Substance: ANAKINRA
     Indication: AUTOIMMUNE DISORDER
     Dates: end: 20130418
  2. ASPERGIC [Suspect]
     Active Substance: ASPIRIN LYSINE
     Indication: THROMBOCYTOSIS
  3. KINERET [Suspect]
     Active Substance: ANAKINRA
     Dates: start: 201307
  4. DOLIPRANE [Suspect]
     Active Substance: ACETAMINOPHEN
     Dosage: 4 TO 5 G PER DAY AS NEEDED

REACTIONS (2)
  - Proteinuria [Unknown]
  - Polyhydramnios [Recovered/Resolved]

NARRATIVE: CASE EVENT DATE: 201307
